FAERS Safety Report 14406831 (Version 2)
Quarter: 2018Q1

REPORT INFORMATION
  Report Type: Report from Study
  Country: US (occurrence: US)
  Receive Date: 20180118
  Receipt Date: 20180209
  Transmission Date: 20180509
  Serious: Yes (Death, Other)
  Sender: FDA-Public Use
  Company Number: US-GILEAD-2018-0316570

PATIENT
  Age: 71 Year
  Sex: Male

DRUGS (4)
  1. AMBRISENTAN [Suspect]
     Active Substance: AMBRISENTAN
     Indication: SCLERODERMA
  2. TYVASO [Suspect]
     Active Substance: TREPROSTINIL
     Indication: PRODUCT USED FOR UNKNOWN INDICATION
     Dosage: 54 UG, QID
     Route: 065
     Dates: start: 201501
  3. AMBRISENTAN [Suspect]
     Active Substance: AMBRISENTAN
     Indication: PULMONARY HYPERTENSION
     Dosage: 5 MG, QD
     Route: 065
     Dates: start: 20170329, end: 20171231
  4. SILDENAFIL. [Concomitant]
     Active Substance: SILDENAFIL
     Dosage: UNK
     Dates: start: 2015

REACTIONS (1)
  - Leukaemia [Fatal]
